FAERS Safety Report 10010299 (Version 2)
Quarter: 2014Q2

REPORT INFORMATION
  Report Type: Report from Study
  Country: US (occurrence: US)
  Receive Date: 20140314
  Receipt Date: 20140421
  Transmission Date: 20141212
  Serious: Yes (Hospitalization)
  Sender: FDA-Public Use
  Company Number: US-ROCHE-1359890

PATIENT
  Age: 73 Year
  Sex: Male
  Weight: 66.67 kg

DRUGS (20)
  1. RIBAVIRIN [Suspect]
     Indication: HEPATITIS C
     Route: 048
     Dates: start: 20130727, end: 20131105
  2. PEG-INTERFERON ALFA 2A [Suspect]
     Indication: HEPATITIS C
     Route: 058
     Dates: start: 20130727, end: 20140104
  3. SOFOSBUVIR [Suspect]
     Indication: HEPATITIS C
     Route: 048
     Dates: start: 20130829, end: 20140109
  4. TACROLIMUS [Concomitant]
  5. SEPTRA [Concomitant]
  6. LIDODERM [Concomitant]
  7. FLEXERIL (UNITED STATES) [Concomitant]
  8. ROXICODONE [Concomitant]
  9. ACYCLOVIR [Concomitant]
  10. PENTAMIDINE [Concomitant]
  11. LABETALOL [Concomitant]
  12. OLANZAPINE [Concomitant]
  13. PANTOPRAZOLE [Concomitant]
  14. FLUDROCORTISONE [Concomitant]
  15. VICODIN [Concomitant]
  16. MAGNESIUM OXIDE [Concomitant]
  17. NYSTATIN [Concomitant]
  18. PREDNISONE [Concomitant]
  19. TORSEMIDE [Concomitant]
  20. BACTRIM [Concomitant]
     Route: 065

REACTIONS (2)
  - Renal failure acute [Not Recovered/Not Resolved]
  - Hyponatraemia [Recovered/Resolved]
